FAERS Safety Report 4783942-7 (Version None)
Quarter: 2005Q3

REPORT INFORMATION
  Report Type: 
  Country: None (occurrence: None)
  Receive Date: 20050927
  Receipt Date: 20050728
  Transmission Date: 20060218
  Serious: No
  Sender: FDA-Public Use
  Company Number: USA0507104045

PATIENT
  Age: 38 Year
  Sex: Male

DRUGS (4)
  1. STRATTERA [Suspect]
     Dosage: 80 MG
     Dates: start: 20050101
  2. LAMISIL [Concomitant]
  3. PROTONIX [Concomitant]
  4. ALLEGRA-D [Concomitant]

REACTIONS (2)
  - DRUG EFFECT DECREASED [None]
  - PANIC ATTACK [None]
